FAERS Safety Report 18451903 (Version 1)
Quarter: 2020Q4

REPORT INFORMATION
  Report Type: Spontaneous
  Country: US (occurrence: US)
  Receive Date: 20201030
  Receipt Date: 20201030
  Transmission Date: 20210114
  Serious: No
  Sender: FDA-Public Use
  Company Number: None

PATIENT
  Age: 36 Year
  Sex: Female
  Weight: 63 kg

DRUGS (3)
  1. IBUPROFEN. [Concomitant]
     Active Substance: IBUPROFEN
  2. LILLOW-BIRTH CONTROL [Concomitant]
  3. AMOXICILLIN. [Suspect]
     Active Substance: AMOXICILLIN
     Indication: TOOTH ABSCESS
     Dosage: ?          QUANTITY:1 CAPSULE(S);??
     Route: 048
     Dates: start: 20201024, end: 20201029

REACTIONS (1)
  - Rash [None]

NARRATIVE: CASE EVENT DATE: 20201024
